FAERS Safety Report 21783869 (Version 3)
Quarter: 2023Q1

REPORT INFORMATION
  Report Type: Spontaneous
  Country: US (occurrence: US)
  Receive Date: 20221227
  Receipt Date: 20230227
  Transmission Date: 20230417
  Serious: Yes (Hospitalization)
  Sender: FDA-Public Use
  Company Number: US-PFIZER INC-202201392966

PATIENT
  Age: 55 Year
  Sex: Female
  Weight: 123.38 kg

DRUGS (2)
  1. VYNDAMAX [Suspect]
     Active Substance: TAFAMIDIS
     Indication: Cardiac amyloidosis
     Dosage: 61 MG
     Dates: start: 202211
  2. VYNDAMAX [Suspect]
     Active Substance: TAFAMIDIS
     Dosage: 61 MG

REACTIONS (5)
  - Pain in extremity [Unknown]
  - Pain [Unknown]
  - Balance disorder [Unknown]
  - Restless legs syndrome [Unknown]
  - Hypoaesthesia [Unknown]

NARRATIVE: CASE EVENT DATE: 20220101
